FAERS Safety Report 8820965 (Version 2)
Quarter: 2012Q4

REPORT INFORMATION
  Report Type: 
  Country: US (occurrence: US)
  Receive Date: 20121002
  Receipt Date: 20121123
  Transmission Date: 20130627
  Serious: Yes (Other)
  Sender: FDA-Public Use
  Company Number: US-009507513-1210USA000746

PATIENT
  Sex: Female
  Weight: 81.63 kg

DRUGS (1)
  1. EMEND FOR INJECTION [Suspect]
     Indication: ANTIEMETIC SUPPORTIVE CARE
     Dosage: 150 Microgram, UNK
     Route: 042
     Dates: start: 20120315

REACTIONS (3)
  - Erythema [Recovered/Resolved]
  - Dyspnoea [Recovered/Resolved]
  - Flushing [Recovered/Resolved]
